FAERS Safety Report 6887475-3 (Version None)
Quarter: 2010Q3

REPORT INFORMATION
  Report Type: 
  Country: None (occurrence: None)
  Receive Date: 20100730
  Receipt Date: 20100723
  Transmission Date: 20110219
  Serious: Yes (Hospitalization, Other)
  Sender: FDA-Public Use
  Company Number: US-PFIZER INC-2010027407

PATIENT
  Sex: Female

DRUGS (4)
  1. CHANTIX [Suspect]
     Indication: SMOKING CESSATION THERAPY
     Dosage: 0.5/1 MG, UNK
     Route: 048
     Dates: start: 20080207, end: 20080309
  2. MYCOLOG [Concomitant]
     Indication: FUNGAL INFECTION
     Dosage: UNK
     Dates: start: 20050101
  3. OLOPATADINE HYDROCHLORIDE [Concomitant]
     Indication: EYE ALLERGY
     Dosage: UNK
     Dates: start: 20060101
  4. LASIX [Concomitant]
     Indication: OEDEMA PERIPHERAL
     Dosage: UNK
     Dates: start: 20071101, end: 20080901

REACTIONS (8)
  - ABNORMAL BEHAVIOUR [None]
  - AGGRESSION [None]
  - AGITATION [None]
  - ANXIETY [None]
  - DEPRESSION [None]
  - HALLUCINATION [None]
  - INTENTIONAL OVERDOSE [None]
  - SUICIDE ATTEMPT [None]
